FAERS Safety Report 4535254-4 (Version None)
Quarter: 2004Q4

REPORT INFORMATION
  Report Type: 
  Country: None (occurrence: None)
  Receive Date: 20041214
  Receipt Date: 20041102
  Transmission Date: 20050328
  Serious: No
  Sender: FDA-Public Use
  Company Number: 2004243327US

PATIENT
  Sex: Female

DRUGS (3)
  1. BEXTRA [Suspect]
     Indication: CERVICAL SPINAL STENOSIS
     Dosage: 20 MG, QD, ORAL
     Route: 048
     Dates: start: 20030101, end: 20041017
  2. CALCIUM GLUCONATE [Concomitant]
  3. LUCNET [Concomitant]

REACTIONS (3)
  - HYPOTRICHOSIS [None]
  - IRON DEFICIENCY [None]
  - NAIL GROWTH CESSATION [None]
